FAERS Safety Report 5480989-2 (Version None)
Quarter: 2007Q4

REPORT INFORMATION
  Report Type: 
  Country: None (occurrence: None)
  Receive Date: 20071004
  Receipt Date: 20070925
  Transmission Date: 20080405
  Serious: Yes (Hospitalization, Other)
  Sender: FDA-Public Use
  Company Number: 2007SP016577

PATIENT
  Age: 48 Year
  Sex: Male
  Weight: 84 kg

DRUGS (2)
  1. PEG-INTRON [Suspect]
     Indication: CHRONIC HEPATITIS
     Dosage: 135 MCG; QW; SC
     Route: 058
     Dates: start: 20060411, end: 20070306
  2. REBETOL [Suspect]
     Indication: HEPATITIS C
     Dosage: 1200 MCG;QD;PO
     Route: 048
     Dates: start: 20060411, end: 20070312

REACTIONS (9)
  - ASCITES [None]
  - BUDD-CHIARI SYNDROME [None]
  - HAEMATOMA [None]
  - HEPATIC CIRRHOSIS [None]
  - HEPATIC FIBROSIS [None]
  - HEPATIC VEIN OCCLUSION [None]
  - HYPERCOAGULATION [None]
  - INGUINAL HERNIA [None]
  - PORTAL HYPERTENSION [None]
